FAERS Safety Report 24837954 (Version 1)
Quarter: 2025Q1

REPORT INFORMATION
  Report Type: Spontaneous
  Country: US (occurrence: US)
  Receive Date: 20250113
  Receipt Date: 20250113
  Transmission Date: 20250409
  Serious: Yes (Other)
  Sender: ANI
  Company Number: US-ANIPHARMA-2025-US-001329

PATIENT
  Age: 51 Year
  Sex: Male

DRUGS (1)
  1. ETODOLAC [Suspect]
     Active Substance: ETODOLAC
     Indication: Product used for unknown indication

REACTIONS (2)
  - Large intestinal stenosis [Recovered/Resolved]
  - Abnormal loss of weight [Unknown]
